FAERS Safety Report 23748737 (Version 1)
Quarter: 2024Q2

REPORT INFORMATION
  Report Type: Spontaneous
  Country: US (occurrence: None)
  Receive Date: 20240409
  Receipt Date: 20240409
  Transmission Date: 20240716
  Serious: No
  Sender: FDA-Public Use
  Company Number: None

PATIENT
  Age: 40 Year
  Sex: Female
  Weight: 98.43 kg

DRUGS (5)
  1. VITAMINS [Suspect]
     Active Substance: VITAMINS
     Indication: Pregnancy
     Dosage: FREQUENCY : DAILY;?
     Route: 048
     Dates: start: 20230420
  2. VERAPAMIL HYDROCHLORIDE [Suspect]
     Active Substance: VERAPAMIL HYDROCHLORIDE
     Dosage: FREQUENCY : DAILY;?
     Route: 048
     Dates: start: 20221104
  3. LATUDA [Suspect]
     Active Substance: LURASIDONE HYDROCHLORIDE
     Dosage: FREQUENCY : DAILY;?
     Route: 048
     Dates: start: 20210404
  4. FAMOTIDINE [Suspect]
     Active Substance: FAMOTIDINE
     Dosage: FREQUENCY : DAILY;?
     Route: 048
     Dates: start: 20230402
  5. METFORMIN [Suspect]
     Active Substance: METFORMIN HYDROCHLORIDE
     Indication: Gestational diabetes
     Dosage: FREQUENCY : DAILY;?
     Route: 048

REACTIONS (3)
  - Maternal drugs affecting foetus [None]
  - Neonatal respiratory distress [None]
  - Hypoglycaemia neonatal [None]

NARRATIVE: CASE EVENT DATE: 20231127
